FAERS Safety Report 6673605-5 (Version None)
Quarter: 2010Q2

REPORT INFORMATION
  Report Type: 
  Country: None (occurrence: None)
  Receive Date: 20100408
  Receipt Date: 20100329
  Transmission Date: 20101027
  Serious: Yes (Other)
  Sender: FDA-Public Use
  Company Number: JP-BRISTOL-MYERS SQUIBB COMPANY-15051923

PATIENT
  Age: 61 Year
  Sex: Male

DRUGS (1)
  1. PROCAINAMIDE HCL [Suspect]

REACTIONS (2)
  - LONG QT SYNDROME [None]
  - TORSADE DE POINTES [None]
